FAERS Safety Report 11265620 (Version 1)
Quarter: 2015Q2

REPORT INFORMATION
  Report Type: Spontaneous
  Country: US (occurrence: None)
  Receive Date: 20150619
  Receipt Date: 20150619
  Transmission Date: 20150821
  Serious: Yes (Death)
  Sender: FDA-Public Use
  Company Number: PHEH2015US006954

PATIENT
  Age: 72 Year
  Sex: Female

DRUGS (3)
  1. FARYDAK [Suspect]
     Active Substance: PANOBINOSTAT
     Indication: PLASMA CELL MYELOMA
     Route: 048
     Dates: start: 20150330, end: 20150408
  2. VELCADE [Concomitant]
     Active Substance: BORTEZOMIB
  3. DEXAMETHASON (DEXAMETHASONE) [Concomitant]

REACTIONS (3)
  - Thrombocytopenia [None]
  - Anaemia [None]
  - Plasma cell myeloma [None]

NARRATIVE: CASE EVENT DATE: 20150331
